FAERS Safety Report 6571609-4 (Version None)
Quarter: 2010Q1

REPORT INFORMATION
  Report Type: 
  Country: None (occurrence: None)
  Receive Date: 20100205
  Receipt Date: 20100128
  Transmission Date: 20100710
  Serious: Yes (Other)
  Sender: FDA-Public Use
  Company Number: BR-ASTRAZENECA-2010SE04158

PATIENT
  Age: 76 Year
  Sex: Female
  Weight: 52 kg

DRUGS (3)
  1. ATACAND [Suspect]
     Indication: HYPERTENSION
     Route: 048
     Dates: start: 20080101, end: 20091101
  2. ANOLDIPINE [Concomitant]
     Indication: BLOOD PRESSURE FLUCTUATION
     Dosage: OD
     Route: 048
     Dates: start: 20080101
  3. HYDROCHLOROTHIAZIDE [Concomitant]
     Indication: HYPERTENSION
     Dosage: OD
     Route: 048
     Dates: start: 20080101

REACTIONS (5)
  - DIZZINESS [None]
  - DRUG DOSE OMISSION [None]
  - HYPERTENSION [None]
  - LIP DRY [None]
  - MUSCLE SPASMS [None]
